FAERS Safety Report 9476301 (Version 1)
Quarter: 2013Q3

REPORT INFORMATION
  Report Type: Report from Study
  Country: CA (occurrence: CA)
  Receive Date: 20130826
  Receipt Date: 20130826
  Transmission Date: 20140515
  Serious: Yes (Hospitalization)
  Sender: FDA-Public Use
  Company Number: CA-JNJFOC-20130809984

PATIENT
  Age: 59 Year
  Sex: Male
  Weight: 62.2 kg

DRUGS (5)
  1. REMICADE [Suspect]
     Indication: COLITIS ULCERATIVE
     Dosage: PATIENT HAD RECEIVED 8 INFUSIONS TILL DATE
     Route: 042
  2. REMICADE [Suspect]
     Indication: COLITIS ULCERATIVE
     Dosage: PATIENT HAD RECEIVED 8 INFUSIONS TILL DATE
     Route: 042
     Dates: start: 20130816
  3. ENTOCORT [Concomitant]
     Route: 065
  4. VITAMIN B12 [Concomitant]
     Route: 065
  5. PANTOLOC [Concomitant]
     Route: 065

REACTIONS (1)
  - Inflammation [Recovering/Resolving]
